FAERS Safety Report 9249837 (Version 5)
Quarter: 2013Q4

REPORT INFORMATION
  Report Type: Report from Study
  Country: DE (occurrence: DE)
  Receive Date: 20130423
  Receipt Date: 20131017
  Transmission Date: 20140711
  Serious: Yes (Death, Life-Threatening, Other)
  Sender: FDA-Public Use
  Company Number: PHHY2013DE038994

PATIENT
  Sex: Female
  Weight: 68 kg

DRUGS (8)
  1. AFINITOR [Suspect]
     Indication: BREAST CANCER METASTATIC
     Dosage: 10 MG, QD
     Route: 048
     Dates: start: 20121212, end: 20130405
  2. EXEMESTANE [Concomitant]
     Indication: BREAST CANCER METASTATIC
     Dosage: 25 MG, QD
     Route: 048
     Dates: start: 20121212, end: 20130404
  3. DENOSUMAB [Concomitant]
     Indication: METASTASES TO BONE
     Dosage: 120 MG, QMO
     Route: 058
     Dates: start: 201212, end: 201304
  4. CALCIUM + VITAMIN D [Concomitant]
     Dosage: 500 MG / 400 IE DAILY
     Dates: start: 201212, end: 201304
  5. IBUPROFEN [Concomitant]
     Dosage: UNK, PRN
     Dates: start: 201210, end: 201304
  6. EUTHYROX [Concomitant]
     Indication: HYPOTHYROIDISM
     Dosage: 75 UG DAILY
     Dates: start: 201210, end: 201304
  7. NEBIVOLOL [Concomitant]
     Indication: HYPERTENSION
     Dosage: UNK
     Route: 048
     Dates: start: 201210, end: 201304
  8. NSAID^S [Concomitant]

REACTIONS (11)
  - Breast cancer metastatic [Fatal]
  - Malignant neoplasm progression [Fatal]
  - Metastases to liver [Fatal]
  - Liver injury [Unknown]
  - Gamma-glutamyltransferase increased [Unknown]
  - Aspartate aminotransferase increased [Unknown]
  - Alanine aminotransferase increased [Not Recovered/Not Resolved]
  - Jaundice [Unknown]
  - Chromaturia [Unknown]
  - Faeces discoloured [Unknown]
  - Abdominal pain upper [Unknown]
